FAERS Safety Report 10029460 (Version 1)
Quarter: 2014Q1

REPORT INFORMATION
  Report Type: Report from Study
  Country: BD (occurrence: BD)
  Receive Date: 20140322
  Receipt Date: 20140322
  Transmission Date: 20141002
  Serious: Yes (Death)
  Sender: FDA-Public Use
  Company Number: PHHY2014BD033849

PATIENT
  Age: 48 Year
  Sex: Male

DRUGS (1)
  1. SEBIVO [Suspect]
     Indication: HEPATITIS B
     Dosage: UKN, QD
     Route: 048
     Dates: start: 20130417, end: 20131125

REACTIONS (2)
  - Gastrointestinal carcinoma [Fatal]
  - Insomnia [Unknown]
